FAERS Safety Report 8349687-1 (Version None)
Quarter: 2012Q2

REPORT INFORMATION
  Report Type: 
  Country: None (occurrence: None)
  Receive Date: 20120510
  Receipt Date: 20120502
  Transmission Date: 20120825
  Serious: Yes (Death, Hospitalization)
  Sender: FDA-Public Use
  Company Number: FR-PFIZER INC-2012079026

PATIENT
  Age: 75 Year
  Sex: Male
  Weight: 88.6 kg

DRUGS (14)
  1. AUGMENTIN [Concomitant]
     Dosage: 2000 MG, DAILY
     Route: 048
  2. ACUPAN [Concomitant]
     Dosage: UNK
     Route: 042
  3. LOVENOX [Concomitant]
     Indication: PROPHYLAXIS
     Dosage: 4000 IU, 1X/DAY
     Route: 048
  4. NEXIUM [Concomitant]
     Indication: PROPHYLAXIS
     Dosage: 40 MG, 1X/DAY
     Route: 048
     Dates: start: 20120301
  5. LEXOMIL [Concomitant]
     Indication: PROPHYLAXIS
     Dosage: 1.5 MG, 1X/DAY
     Route: 048
  6. FLECTOR [Concomitant]
     Dosage: 2 WITHOUT UNITS
     Route: 062
  7. AMLODIPINE BESYLATE [Concomitant]
     Dosage: UNK
  8. PREDNISOLONE [Concomitant]
     Indication: DYSPNOEA
     Dosage: 40 MG, 1X/DAY
     Route: 048
     Dates: start: 20120301
  9. MORPHINE [Concomitant]
     Dosage: UNK
     Route: 048
  10. NOVORAPID [Concomitant]
     Dosage: 100 IU, 1X/DAY
     Route: 058
     Dates: start: 20120326
  11. MICONAZOLE [Concomitant]
     Dosage: 50 MG, 1X/DAY
     Route: 048
     Dates: start: 20120321, end: 20120327
  12. IMOVANE [Concomitant]
     Dosage: 36 MG, 1X/DAY
     Route: 048
     Dates: start: 20120323
  13. SUTENT [Suspect]
     Indication: METASTATIC RENAL CELL CARCINOMA
     Dosage: 50 MG, UNK
     Route: 048
     Dates: start: 20120302, end: 20120326
  14. TRANSIPEG [Concomitant]
     Dosage: 11.8 MG, 1X/DAY
     Route: 048
     Dates: start: 20120324

REACTIONS (2)
  - PNEUMOPERITONEUM [None]
  - INTESTINAL PERFORATION [None]
